FAERS Safety Report 6869792-6 (Version None)
Quarter: 2010Q3

REPORT INFORMATION
  Report Type: 
  Country: None (occurrence: None)
  Receive Date: 20100722
  Receipt Date: 20080903
  Transmission Date: 20110219
  Serious: No
  Sender: FDA-Public Use
  Company Number: US-PFIZER INC-2008073772

PATIENT
  Sex: Female
  Weight: 51.26 kg

DRUGS (2)
  1. CHANTIX [Suspect]
     Indication: SMOKING CESSATION THERAPY
     Route: 048
     Dates: start: 20080701, end: 20080801
  2. LIPITOR [Concomitant]

REACTIONS (2)
  - FEELING ABNORMAL [None]
  - MIGRAINE [None]
